FAERS Safety Report 7088827-1 (Version None)
Quarter: 2010Q4

REPORT INFORMATION
  Report Type: 
  Country: None (occurrence: None)
  Receive Date: 20101029
  Receipt Date: 20101013
  Transmission Date: 20110411
  Serious: Yes (Hospitalization)
  Sender: FDA-Public Use
  Company Number: 2010004502

PATIENT
  Age: 75 Year
  Sex: Male

DRUGS (7)
  1. ERLOTINIB(ERLOTINIB) (TABLET) (ERLOTINIB) [Suspect]
     Indication: HEPATIC NEOPLASM MALIGNANT
     Dosage: 150 MG, QD, ORAL
     Route: 048
     Dates: start: 20100201, end: 20100930
  2. BEVACIZUMAB [Suspect]
     Indication: HEPATIC NEOPLASM MALIGNANT
     Dosage: 10 MG/KG, INTRAVENOUS
     Route: 042
     Dates: start: 20100201, end: 20100930
  3. LOVENOX (HEPARIN-F-RACTION, SODIIUM SALT) [Concomitant]
  4. GLIPIZIDE [Concomitant]
  5. ATENOLOL [Concomitant]
  6. MAXZIDE [Concomitant]
  7. ALLOPURINOL [Concomitant]

REACTIONS (1)
  - HAEMORRHAGE [None]
